FAERS Safety Report 10099535 (Version 3)
Quarter: 2014Q2

REPORT INFORMATION
  Report Type: Spontaneous
  Country: FR (occurrence: FR)
  Receive Date: 20140423
  Receipt Date: 20140506
  Transmission Date: 20141212
  Serious: Yes (Death, Other)
  Sender: FDA-Public Use
  Company Number: FR-BAYER-2014-052478

PATIENT
  Age: 52 Year
  Sex: Male

DRUGS (9)
  1. ULTRAVIST [Suspect]
     Indication: COMPUTERISED TOMOGRAM
     Dosage: 100 ML, ONCE
     Dates: start: 20140404, end: 20140404
  2. ULTRAVIST [Suspect]
     Indication: THROMBOSIS
  3. DIAMICRON [Concomitant]
     Dosage: 60 MG, QD
  4. METFORMIN [Concomitant]
     Dosage: 850 MG, QD
  5. NAFTIDROFURYL [Concomitant]
     Dosage: 200 MG, QD
  6. ATORVASTATIN [Concomitant]
     Dosage: 10 MG, QD
  7. COAPROVEL [Concomitant]
     Dosage: 300/12.5, QD
  8. KARDEGIC [Concomitant]
     Dosage: 160 MG, QD
  9. TAMSULOSIN [Concomitant]
     Dosage: 0.4 MG, QD

REACTIONS (10)
  - Anaphylactic shock [Fatal]
  - Cardio-respiratory arrest [Fatal]
  - Fall [None]
  - Loss of consciousness [Fatal]
  - Dyspnoea [Fatal]
  - Urinary incontinence [Fatal]
  - Cardiac arrest [Fatal]
  - Generalised erythema [Fatal]
  - Eyelid oedema [Fatal]
  - Urticaria [Fatal]
